FAERS Safety Report 6700424-3 (Version None)
Quarter: 2010Q2

REPORT INFORMATION
  Report Type: 
  Country: None (occurrence: None)
  Receive Date: 20100428
  Receipt Date: 20100421
  Transmission Date: 20101027
  Serious: Yes (Other)
  Sender: FDA-Public Use
  Company Number: CH-ROCHE-698934

PATIENT
  Age: 5 Year
  Sex: Male

DRUGS (4)
  1. TAMIFLU [Suspect]
     Indication: INFLUENZA
     Route: 048
     Dates: start: 20091126, end: 20091201
  2. VENTOLIN [Concomitant]
     Indication: ASTHMA
     Dosage: LONG TERM, RESPIRATORY (INHALATION)
     Route: 055
  3. AXOTIDE [Concomitant]
     Indication: ASTHMA
     Dosage: LONG TERM, RESPIRATORY (INHALATION)
     Route: 055
  4. PARACETAMOL [Concomitant]
     Dosage: SHORT TERM

REACTIONS (1)
  - NIGHTMARE [None]
